FAERS Safety Report 20882463 (Version 2)
Quarter: 2024Q4

REPORT INFORMATION
  Report Type: Report from Study
  Country: US (occurrence: US)
  Receive Date: 20220527
  Receipt Date: 20241213
  Transmission Date: 20250115
  Serious: Yes (Disabling, Other)
  Sender: BIOGEN
  Company Number: US-BIOGEN-2022BI01126120

PATIENT
  Age: 27 Year
  Sex: Female

DRUGS (2)
  1. VUMERITY [Suspect]
     Active Substance: DIROXIMEL FUMARATE
     Indication: Multiple sclerosis
     Route: 050
     Dates: start: 20200904, end: 20241203
  2. ACETAMINOPHEN [Concomitant]
     Active Substance: ACETAMINOPHEN
     Indication: Product used for unknown indication
     Route: 050

REACTIONS (16)
  - Hepatic function abnormal [Not Recovered/Not Resolved]
  - Infection susceptibility increased [Unknown]
  - Fatigue [Not Recovered/Not Resolved]
  - Asthenia [Not Recovered/Not Resolved]
  - Hypersensitivity [Not Recovered/Not Resolved]
  - Sleep disorder [Unknown]
  - COVID-19 [Unknown]
  - Decreased immune responsiveness [Unknown]
  - Malaise [Unknown]
  - Feeling abnormal [Unknown]
  - Dizziness [Unknown]
  - Respiratory disorder [Unknown]
  - Product dose omission issue [Unknown]
  - Alopecia [Unknown]
  - Rhinorrhoea [Unknown]
  - Flushing [Unknown]

NARRATIVE: CASE EVENT DATE: 20211201
